FAERS Safety Report 5874899-6 (Version None)
Quarter: 2008Q3

REPORT INFORMATION
  Report Type: 
  Country: None (occurrence: None)
  Receive Date: 20080909
  Receipt Date: 20080903
  Transmission Date: 20090109
  Serious: Yes (Hospitalization)
  Sender: FDA-Public Use
  Company Number: JP-ASTRAZENECA-2008AP05157

PATIENT
  Age: 81 Year
  Sex: Female
  Weight: 58 kg

DRUGS (4)
  1. CRESTOR [Suspect]
     Indication: HYPERCHOLESTEROLAEMIA
     Route: 048
     Dates: start: 20070802, end: 20080219
  2. ZITHROMAX [Concomitant]
     Indication: BRONCHITIS
     Route: 048
     Dates: start: 20080216, end: 20080218
  3. KODESORUVAN [Concomitant]
     Indication: BRONCHITIS
     Route: 048
     Dates: start: 20080216, end: 20080219
  4. TONIL [Concomitant]
     Indication: BRONCHITIS
     Route: 048
     Dates: start: 20080216, end: 20080219

REACTIONS (2)
  - BRONCHITIS [None]
  - LIVER DISORDER [None]
